FAERS Safety Report 8564436-X (Version None)
Quarter: 2012Q3

REPORT INFORMATION
  Report Type: 
  Country: None (occurrence: None)
  Receive Date: 20120803
  Receipt Date: 20120724
  Transmission Date: 20120928
  Serious: No
  Sender: FDA-Public Use
  Company Number: US-ENDO PHARMACEUTICALS INC.-OPER20120715

PATIENT
  Sex: Female

DRUGS (1)
  1. OPANA ER [Suspect]
     Indication: PAIN
     Route: 048
     Dates: end: 20120101

REACTIONS (1)
  - DRUG EFFECT DECREASED [None]
